FAERS Safety Report 14873487 (Version 1)
Quarter: 2018Q2

REPORT INFORMATION
  Report Type: Spontaneous
  Country: FR (occurrence: FR)
  Receive Date: 20180510
  Receipt Date: 20180510
  Transmission Date: 20180711
  Serious: Yes (Other)
  Sender: FDA-Public Use
  Company Number: FR-MERCK KGAA-2047518

PATIENT
  Age: 49 Year
  Sex: Female

DRUGS (1)
  1. NOVOTHYROX [Suspect]
     Active Substance: LEVOTHYROXINE SODIUM
     Indication: THYROIDECTOMY
     Dates: start: 201704, end: 201709

REACTIONS (36)
  - Depression [Recovering/Resolving]
  - Myalgia [Recovering/Resolving]
  - Apathy [None]
  - Gait disturbance [None]
  - Postmenopausal haemorrhage [None]
  - Anxiety [Recovering/Resolving]
  - Tinnitus [Recovering/Resolving]
  - Agoraphobia [None]
  - Onychoclasis [Recovering/Resolving]
  - Disturbance in attention [None]
  - Amnesia [None]
  - Irritability [None]
  - Libido decreased [None]
  - Vision blurred [Recovering/Resolving]
  - Haematocrit increased [None]
  - Decreased activity [None]
  - Malaise [None]
  - Mental disorder [None]
  - Insomnia [Recovering/Resolving]
  - Muscle spasms [None]
  - Aggression [None]
  - Alopecia [Recovering/Resolving]
  - Social avoidant behaviour [None]
  - Pain [None]
  - Dyspnoea [None]
  - Emotional disorder [None]
  - Asthenia [Recovering/Resolving]
  - Headache [Recovering/Resolving]
  - Diarrhoea [Recovering/Resolving]
  - Dizziness [Recovering/Resolving]
  - Hot flush [Recovering/Resolving]
  - Palpitations [Recovering/Resolving]
  - Affect lability [None]
  - Fatigue [None]
  - Feeling abnormal [None]
  - Stress [None]

NARRATIVE: CASE EVENT DATE: 201704
